FAERS Safety Report 15907477 (Version 2)
Quarter: 2019Q1

REPORT INFORMATION
  Report Type: Report from Study
  Country: NZ (occurrence: NZ)
  Receive Date: 20190204
  Receipt Date: 20190212
  Transmission Date: 20190417
  Serious: Yes (Hospitalization)
  Sender: FDA-Public Use
  Company Number: NZ-EXELIXIS-XL18419018600

PATIENT
  Age: 52 Year
  Sex: Male
  Weight: 74.5 kg

DRUGS (12)
  1. UREA CREAM [Concomitant]
     Active Substance: UREA
     Indication: PALMAR-PLANTAR ERYTHRODYSAESTHESIA SYNDROME
     Dosage: UNK, BID
     Route: 061
     Dates: start: 20180907
  2. M-ESLON [Concomitant]
     Active Substance: MORPHINE SULFATE
     Dosage: 40 MG, BID
     Route: 048
     Dates: start: 20181227
  3. MORPHINE [Concomitant]
     Active Substance: MORPHINE
  4. CB-839 OR PLACEBO [Suspect]
     Active Substance: TELAGLENASTAT
     Indication: RENAL CELL CARCINOMA
     Dosage: 800 MG, BID
     Route: 048
     Dates: start: 20180906, end: 20190118
  5. CLOBETASOL [Concomitant]
     Active Substance: CLOBETASOL
     Indication: PALMAR-PLANTAR ERYTHRODYSAESTHESIA SYNDROME
     Dosage: UNK
     Route: 061
     Dates: start: 20181019
  6. LOPERAMIDE [Concomitant]
     Active Substance: LOPERAMIDE
     Indication: DIARRHOEA
     Dosage: 2 MG, PRN
     Route: 048
     Dates: start: 20180919
  7. CABOZANTINIB [Suspect]
     Active Substance: CABOZANTINIB
     Indication: RENAL CELL CARCINOMA
     Dosage: 40 MG, QD
     Route: 048
     Dates: start: 20180906, end: 20190112
  8. SEVREDOL [Concomitant]
     Active Substance: MORPHINE
     Indication: BACK PAIN
     Dosage: UNK, PRN
     Route: 048
     Dates: start: 201711
  9. LAXSOL [Concomitant]
     Active Substance: DOCUSATE SODIUM\SENNOSIDES A AND B
     Indication: CONSTIPATION
     Dosage: 2-3 TABS
     Route: 048
     Dates: start: 201711
  10. DOMPERIDONE [Concomitant]
     Active Substance: DOMPERIDONE
     Indication: NAUSEA
     Dosage: 10 MG, PRN
     Route: 048
     Dates: start: 20181006
  11. M-ESLON [Concomitant]
     Active Substance: MORPHINE SULFATE
     Indication: BACK PAIN
     Dosage: 30 MG, BID
     Route: 048
     Dates: start: 20181101, end: 20181227
  12. RANITIDINE. [Concomitant]
     Active Substance: RANITIDINE
     Indication: DYSPEPSIA
     Dosage: 150 MG, PRN
     Route: 048
     Dates: start: 201807

REACTIONS (1)
  - Ascites [Recovered/Resolved]

NARRATIVE: CASE EVENT DATE: 20190118
